FAERS Safety Report 6892883-0 (Version None)
Quarter: 2010Q3

REPORT INFORMATION
  Report Type: 
  Country: None (occurrence: None)
  Receive Date: 20100731
  Receipt Date: 20081030
  Transmission Date: 20110219
  Serious: No
  Sender: FDA-Public Use
  Company Number: US-PFIZER INC-2008069436

PATIENT

DRUGS (4)
  1. ANTIVERT [Suspect]
  2. AGGRENOX [Suspect]
  3. ALL OTHER THERAPEUTIC PRODUCTS [Suspect]
  4. MECLIZINE [Concomitant]

REACTIONS (1)
  - DRUG INEFFECTIVE [None]
